FAERS Safety Report 9437324 (Version 1)
Quarter: 2013Q3

REPORT INFORMATION
  Report Type: Spontaneous
  Country: DE (occurrence: None)
  Receive Date: 20130731
  Receipt Date: 20130731
  Transmission Date: 20140515
  Serious: Yes (Other)
  Sender: FDA-Public Use
  Company Number: GER/GER/13/0033453

PATIENT
  Sex: Male
  Weight: 3.13 kg

DRUGS (1)
  1. SERTRALINE [Suspect]
     Indication: PRODUCT USED FOR UNKNOWN INDICATION
     Route: 063
     Dates: start: 20080612

REACTIONS (3)
  - Restlessness [None]
  - Frequent bowel movements [None]
  - Exposure during breast feeding [None]
